FAERS Safety Report 7370204-7 (Version None)
Quarter: 2011Q1

REPORT INFORMATION
  Report Type: 
  Country: None (occurrence: None)
  Receive Date: 20110323
  Receipt Date: 20101103
  Transmission Date: 20110831
  Serious: No
  Sender: FDA-Public Use
  Company Number: US-ASTRAZENECA-2010SE52419

PATIENT
  Sex: Female
  Weight: 72.6 kg

DRUGS (8)
  1. LISINOPRIL [Suspect]
     Route: 048
  2. PROAIR HFA [Concomitant]
     Indication: ASTHMA
  3. NEBULIZER [Concomitant]
     Indication: ASTHMA
  4. MULTIVITAMIN [Concomitant]
  5. CRESTOR [Suspect]
     Indication: BLOOD CHOLESTEROL INCREASED
     Route: 048
     Dates: start: 20100101, end: 20100101
  6. CRESTOR [Suspect]
     Route: 048
     Dates: start: 20100101
  7. DIAVAN [Concomitant]
     Indication: HYPERTENSION
  8. SINGULAIR [Concomitant]
     Indication: ASTHMA

REACTIONS (4)
  - BLOOD CHOLESTEROL INCREASED [None]
  - ASTHMA [None]
  - DRUG INEFFECTIVE [None]
  - COUGH [None]
